FAERS Safety Report 18924203 (Version 1)
Quarter: 2021Q1

REPORT INFORMATION
  Report Type: Spontaneous
  Country: US (occurrence: US)
  Receive Date: 20210222
  Receipt Date: 20210222
  Transmission Date: 20210420
  Serious: No
  Sender: FDA-Public Use
  Company Number: US-TEVA-2019-US-1033905

PATIENT

DRUGS (1)
  1. TEVA ELETRIPTAN [Suspect]
     Active Substance: ELETRIPTAN
     Indication: MIGRAINE
     Route: 065

REACTIONS (9)
  - Photophobia [Recovered/Resolved]
  - Pain [Unknown]
  - Dizziness [Unknown]
  - Nausea [Recovered/Resolved]
  - Vision blurred [Unknown]
  - Somnolence [Unknown]
  - Product packaging issue [Unknown]
  - Therapeutic product effect incomplete [Unknown]
  - Product substitution issue [Unknown]

NARRATIVE: CASE EVENT DATE: 20190202
